FAERS Safety Report 17362545 (Version 2)
Quarter: 2020Q1

REPORT INFORMATION
  Report Type: Report from Study
  Country: US (occurrence: US)
  Receive Date: 20200203
  Receipt Date: 20200305
  Transmission Date: 20200409
  Serious: Yes (Other)
  Sender: FDA-Public Use
  Company Number: NVSC2020US025424

PATIENT
  Age: 55 Year
  Sex: Female

DRUGS (2)
  1. ILARIS [Suspect]
     Active Substance: CANAKINUMAB
     Indication: AUTOIMMUNE DISORDER
     Dosage: 150 MG, Q4W
     Route: 058
     Dates: start: 20131118
  2. ILARIS [Suspect]
     Active Substance: CANAKINUMAB
     Dosage: 150 MG, Q3W
     Route: 058
     Dates: start: 20191016

REACTIONS (7)
  - Seizure cluster [Recovering/Resolving]
  - Dyskinesia [Recovering/Resolving]
  - Diaphragmatic spasm [Unknown]
  - Loss of consciousness [Recovering/Resolving]
  - Inappropriate schedule of product administration [Unknown]
  - Facial pain [Unknown]
  - Muscle rigidity [Recovering/Resolving]

NARRATIVE: CASE EVENT DATE: 20200128
